FAERS Safety Report 13916086 (Version 1)
Quarter: 2017Q3

REPORT INFORMATION
  Report Type: Spontaneous
  Country: US (occurrence: None)
  Receive Date: 20170827
  Receipt Date: 20170827
  Transmission Date: 20171127
  Serious: No
  Sender: FDA-Public Use
  Company Number: None

PATIENT
  Age: 6 Month
  Sex: Male

DRUGS (1)
  1. COPAXONE [Suspect]
     Active Substance: GLATIRAMER ACETATE
     Indication: MULTIPLE SCLEROSIS
     Route: 058
     Dates: start: 20170515, end: 20170628

REACTIONS (4)
  - Palpitations [None]
  - Tremor [None]
  - Chills [None]
  - Dyspnoea [None]

NARRATIVE: CASE EVENT DATE: 20170823
